FAERS Safety Report 4466898-6 (Version None)
Quarter: 2004Q3

REPORT INFORMATION
  Report Type: 
  Country: None (occurrence: None)
  Receive Date: 20040930
  Receipt Date: 20040921
  Transmission Date: 20050211
  Serious: Yes (Hospitalization, Disabling)
  Sender: FDA-Public Use
  Company Number: 002#4#2002-00306

PATIENT
  Age: 37 Year
  Sex: Male

DRUGS (10)
  1. PPA/CPM-75/8MG (OTC) (PHENYLPROPANOLAMINE HCL, CHLORPHENIRAMINE MALEAT [Suspect]
     Indication: NASOPHARYNGITIS
     Dosage: 2 IN 1 D, ORAL
     Route: 048
     Dates: start: 19890101, end: 19990501
  2. CLARITIN-D [Concomitant]
  3. RHINOCORT-AQUA-SPRAY [Concomitant]
  4. SINUTAB [Concomitant]
  5. SUDAFED S.A. [Concomitant]
  6. NYQUIL [Concomitant]
  7. DRISTAN [Concomitant]
  8. AFRIN [Concomitant]
  9. BENADRYL [Concomitant]
  10. ROBITUSSIN-DM [Concomitant]

REACTIONS (7)
  - AMNESIA [None]
  - BALANCE DISORDER [None]
  - CAROTID ARTERY STENOSIS [None]
  - CEREBELLAR INFARCTION [None]
  - CEREBROVASCULAR ACCIDENT [None]
  - INJURY [None]
  - MITRAL VALVE INCOMPETENCE [None]
